FAERS Safety Report 15074729 (Version 1)
Quarter: 2018Q2

REPORT INFORMATION
  Report Type: Spontaneous
  Country: US (occurrence: US)
  Receive Date: 20180627
  Receipt Date: 20180627
  Transmission Date: 20180711
  Serious: Yes (Other)
  Sender: FDA-Public Use
  Company Number: US-SAOL THERAPEUTICS-2017SAO01220

PATIENT
  Age: 74 Year
  Sex: Female
  Weight: 49.89 kg

DRUGS (5)
  1. COMPOUNDED BACLOFEN [Suspect]
     Active Substance: BACLOFEN
     Indication: MUSCLE SPASTICITY
     Dosage: 75 ?G, \DAY
     Route: 037
  2. ASPIRIN. [Concomitant]
     Active Substance: ASPIRIN
  3. PERCOCET [Concomitant]
     Active Substance: ACETAMINOPHEN\OXYCODONE HYDROCHLORIDE
     Dosage: 1 TABLETS, 1X/DAY
     Route: 048
  4. OXYBUTYNIN CHLORIDE. [Concomitant]
     Active Substance: OXYBUTYNIN CHLORIDE
  5. SYNTHROID [Concomitant]
     Active Substance: LEVOTHYROXINE SODIUM

REACTIONS (7)
  - Gait disturbance [Not Recovered/Not Resolved]
  - Therapeutic response decreased [Recovering/Resolving]
  - Medical device site discomfort [Unknown]
  - Nocturia [Unknown]
  - Muscle contracture [Not Recovered/Not Resolved]
  - Arthralgia [Unknown]
  - Implant site pain [Unknown]

NARRATIVE: CASE EVENT DATE: 20170522
